FAERS Safety Report 7838016-5 (Version None)
Quarter: 2011Q4

REPORT INFORMATION
  Report Type: 
  Country: None (occurrence: None)
  Receive Date: 20111024
  Receipt Date: 20110816
  Transmission Date: 20120403
  Serious: No
  Sender: FDA-Public Use
  Company Number: US-ABBOTT-11P-163-0847478-00

PATIENT
  Sex: Female
  Weight: 69.462 kg

DRUGS (3)
  1. LUPRON DEPOT [Suspect]
     Indication: UTERINE LEIOMYOMA
     Route: 030
     Dates: start: 20110630
  2. LUPRON DEPOT [Suspect]
     Indication: UTERINE HAEMORRHAGE
  3. LUPRON DEPOT [Suspect]
     Indication: HAEMOGLOBIN DECREASED

REACTIONS (3)
  - UTERINE HAEMORRHAGE [None]
  - MENSTRUATION IRREGULAR [None]
  - DRUG EFFECT DECREASED [None]
